FAERS Safety Report 22331181 (Version 4)
Quarter: 2023Q4

REPORT INFORMATION
  Report Type: Report from Study
  Country: CO (occurrence: CO)
  Receive Date: 20230517
  Receipt Date: 20231112
  Transmission Date: 20240110
  Serious: Yes (Death, Other)
  Sender: FDA-Public Use
  Company Number: CO-002147023-NVSC2023CO109746

PATIENT
  Age: 82 Year
  Sex: Male

DRUGS (1)
  1. COSENTYX [Suspect]
     Active Substance: SECUKINUMAB
     Indication: Psoriasis
     Dosage: 300 MG, QMO
     Route: 058

REACTIONS (7)
  - Death [Fatal]
  - Syncope [Unknown]
  - Psoriatic arthropathy [Unknown]
  - Illness [Unknown]
  - Malaise [Unknown]
  - Skin exfoliation [Unknown]
  - Eating disorder [Unknown]

NARRATIVE: CASE EVENT DATE: 20230821
